FAERS Safety Report 8516935 (Version 3)
Quarter: 2013Q4

REPORT INFORMATION
  Report Type: Spontaneous
  Country: JP (occurrence: JP)
  Receive Date: 20120417
  Receipt Date: 20131112
  Transmission Date: 20140711
  Serious: Yes (Hospitalization)
  Sender: FDA-Public Use
  Company Number: JP-ROCHE-1057935

PATIENT
  Age: 17 Year
  Sex: Male
  Weight: 63 kg

DRUGS (6)
  1. ACTEMRA [Suspect]
     Indication: JUVENILE IDIOPATHIC ARTHRITIS
     Dosage: DOSAGE IS UNCERTAIN.
     Route: 041
     Dates: start: 20120104, end: 20120104
  2. ACTEMRA [Suspect]
     Indication: JUVENILE IDIOPATHIC ARTHRITIS
     Route: 041
     Dates: start: 20120319, end: 20120319
  3. RHEUMATREX [Concomitant]
     Indication: JUVENILE IDIOPATHIC ARTHRITIS
     Route: 048
     Dates: start: 20071105, end: 20080323
  4. RHEUMATREX [Concomitant]
     Indication: JUVENILE IDIOPATHIC ARTHRITIS
     Route: 048
     Dates: start: 20080324, end: 20110125
  5. RHEUMATREX [Concomitant]
     Indication: JUVENILE IDIOPATHIC ARTHRITIS
     Route: 048
     Dates: start: 20110126, end: 20110420
  6. RHEUMATREX [Concomitant]
     Indication: JUVENILE IDIOPATHIC ARTHRITIS
     Route: 048
     Dates: start: 20110421

REACTIONS (7)
  - Enteritis [Recovered/Resolved]
  - Henoch-Schonlein purpura [Recovered/Resolved]
  - Rash [Unknown]
  - Arthralgia [Unknown]
  - Stomatitis [Unknown]
  - Tonsillitis [Recovered/Resolved]
  - Pain in extremity [Unknown]
